FAERS Safety Report 6019820-5 (Version None)
Quarter: 2008Q4

REPORT INFORMATION
  Report Type: 
  Country: None (occurrence: None)
  Receive Date: 20081224
  Receipt Date: 20081220
  Transmission Date: 20090506
  Serious: Yes (Life-Threatening)
  Sender: FDA-Public Use
  Company Number: US-B.I. PHARMACEUTICALS,INC./RIDGEFIELD-2008-BP-18948BP

PATIENT
  Age: 36 Year
  Sex: Female

DRUGS (1)
  1. DULCOLAX [Suspect]
     Indication: CONSTIPATION
     Dosage: 15MG
     Route: 048
     Dates: start: 20081220

REACTIONS (2)
  - ABDOMINAL PAIN [None]
  - DYSPNOEA [None]
